FAERS Safety Report 9192509 (Version 1)
Quarter: 2013Q1

REPORT INFORMATION
  Report Type: Spontaneous
  Country: US (occurrence: US)
  Receive Date: 20130327
  Receipt Date: 20130327
  Transmission Date: 20140127
  Serious: No
  Sender: FDA-Public Use
  Company Number: US-PFIZER INC-2013096376

PATIENT
  Age: 33 Year
  Sex: Female
  Weight: 122 kg

DRUGS (3)
  1. LYRICA [Suspect]
     Indication: NEURALGIA
     Dosage: UNK, 2X/DAY
     Dates: start: 20130304
  2. TRIAMTERENE [Suspect]
     Indication: HYPERTENSION
     Dosage: UNK, 1X/DAY
     Dates: start: 2013
  3. DOXYCYCLINE [Concomitant]
     Indication: ROSACEA
     Dosage: UNK, 2X/DAY
     Dates: start: 201302

REACTIONS (4)
  - Oedema peripheral [Not Recovered/Not Resolved]
  - Joint swelling [Not Recovered/Not Resolved]
  - Musculoskeletal stiffness [Not Recovered/Not Resolved]
  - Joint stiffness [Not Recovered/Not Resolved]
